FAERS Safety Report 23256891 (Version 1)
Quarter: 2023Q4

REPORT INFORMATION
  Report Type: Spontaneous
  Country: FR (occurrence: FR)
  Receive Date: 20231204
  Receipt Date: 20231204
  Transmission Date: 20240110
  Serious: Yes (Other)
  Sender: FDA-Public Use
  Company Number: FR-AMGEN-FRASP2023211331

PATIENT
  Age: 53 Year
  Sex: Male

DRUGS (2)
  1. ADALIMUMAB [Suspect]
     Active Substance: ADALIMUMAB\ISOPROPYL ALCOHOL
     Indication: Colitis ulcerative
     Dosage: UNK
     Route: 065
     Dates: start: 201904, end: 202003
  2. ADALIMUMAB [Suspect]
     Active Substance: ADALIMUMAB\ISOPROPYL ALCOHOL
     Indication: Colitis

REACTIONS (5)
  - Autoimmune hepatitis [Recovered/Resolved]
  - Dermatitis psoriasiform [Unknown]
  - Hepatic steatosis [Unknown]
  - Cell death [Unknown]
  - Off label use [Unknown]

NARRATIVE: CASE EVENT DATE: 20190401
